FAERS Safety Report 12807817 (Version 1)
Quarter: 2016Q4

REPORT INFORMATION
  Report Type: Spontaneous
  Country: US (occurrence: US)
  Receive Date: 20161004
  Receipt Date: 20161004
  Transmission Date: 20170207
  Serious: No
  Sender: FDA-Public Use
  Company Number: US-AMGEN-USASP2016077634

PATIENT
  Age: 82 Year
  Sex: Male

DRUGS (2)
  1. XOFIGO [Concomitant]
     Active Substance: RADIUM RA-223 DICHLORIDE
  2. XGEVA [Suspect]
     Active Substance: DENOSUMAB
     Indication: PROSTATE CANCER METASTATIC
     Dosage: UNK, Q4WK
     Route: 065

REACTIONS (4)
  - Decreased appetite [Unknown]
  - Fatigue [Unknown]
  - Bedridden [Unknown]
  - Weight decreased [Unknown]
